FAERS Safety Report 7574661-2 (Version None)
Quarter: 2011Q2

REPORT INFORMATION
  Report Type: 
  Country: None (occurrence: None)
  Receive Date: 20110627
  Receipt Date: 20110509
  Transmission Date: 20111010
  Serious: Yes (Hospitalization)
  Sender: FDA-Public Use
  Company Number: KR-BAYER-2011-037763

PATIENT
  Age: 44 Year
  Sex: Male
  Weight: 68 kg

DRUGS (11)
  1. RANITIDINE [Concomitant]
     Indication: PROPHYLAXIS
     Dosage: 150 MG, BID
     Dates: start: 20110205
  2. ADEFOVIR DIPIVOXIL KIT [Concomitant]
     Indication: LIVER DISORDER
     Dosage: 10 MG, QD
     Dates: start: 20110303
  3. ASCORBIC ACID W/VITAMIN B NOS [Concomitant]
     Indication: VITAMIN SUPPLEMENTATION
  4. LINIFANIB [Suspect]
     Indication: HEPATIC NEOPLASM MALIGNANT
  5. CODEINE PHOSPHATE/IBUPROFEN/PARACETAMOL [Concomitant]
     Indication: ABDOMINAL PAIN
     Dosage: 1 DF, TID
     Dates: start: 20110308
  6. SORAFENIB (RAF KINASE INHIBITOR) [Suspect]
     Indication: HEPATIC NEOPLASM MALIGNANT
     Dosage: 400 MG, BID
     Dates: start: 20110222, end: 20110404
  7. TELBIVUDINE [Concomitant]
     Indication: LIVER DISORDER
     Dosage: 600 MG, QD
     Dates: start: 20110205
  8. REBAMIPIDE [Concomitant]
     Indication: PROPHYLAXIS
     Dosage: 100 MG, TID
     Dates: start: 20110205, end: 20110310
  9. GABAPENTIN [Concomitant]
     Indication: HYPOAESTHESIA
     Dosage: 100 MG, TID
     Dates: start: 20110205
  10. ASCORBIC ACID W/VITAMIN B NOS [Concomitant]
     Indication: LIVER DISORDER
     Dosage: 1 DF, BID
     Dates: start: 20110205
  11. TRIAZOLAM [Concomitant]
     Indication: INSOMNIA
     Dosage: 0.25 MG, QD
     Dates: start: 20110222

REACTIONS (1)
  - GASTROENTERITIS RADIATION [None]
